FAERS Safety Report 26170914 (Version 1)
Quarter: 2025Q4

REPORT INFORMATION
  Report Type: Spontaneous
  Country: US (occurrence: US)
  Receive Date: 20251217
  Receipt Date: 20251217
  Transmission Date: 20260118
  Serious: No
  Sender: SANOFI AVENTIS
  Company Number: US-SA-2025SA374872

PATIENT
  Age: 71 Year

DRUGS (2)
  1. SOLIQUA 100/33 [Suspect]
     Active Substance: INSULIN GLARGINE\LIXISENATIDE
     Indication: Blood glucose
     Dosage: 12 IU, QD
     Route: 058
  2. ADMELOG [Suspect]
     Active Substance: INSULIN LISPRO
     Indication: Blood glucose
     Dosage: 7U BKFST, 7U LUNCH 5U DINNER TID
     Route: 058

REACTIONS (1)
  - Off label use [Unknown]
